FAERS Safety Report 9658838 (Version 2)
Quarter: 2013Q4

REPORT INFORMATION
  Report Type: Spontaneous
  Country: US (occurrence: US)
  Receive Date: 20131030
  Receipt Date: 20131030
  Transmission Date: 20140711
  Serious: No
  Sender: FDA-Public Use
  Company Number: US-PURDUE-USA-2010-0056853

PATIENT
  Age: 53 Year
  Sex: Male

DRUGS (10)
  1. OXYCONTIN (NDA 22-272) [Suspect]
     Indication: SPINAL FUSION SURGERY
     Dosage: 160 MG, BID
     Dates: start: 20100920, end: 20101018
  2. OXYCONTIN (NDA 22-272) [Suspect]
     Indication: PAIN
  3. RANITIDINE [Concomitant]
     Indication: GASTROOESOPHAGEAL REFLUX DISEASE
     Dosage: 300 MG, DAILY
     Dates: start: 20060301
  4. RANITIDINE [Concomitant]
     Dosage: 150 MG, BID
     Dates: start: 20060301
  5. BENADRYL                           /00000402/ [Concomitant]
     Indication: PRURITUS
     Dosage: UNK
     Dates: start: 201009, end: 201010
  6. LISINOPRIL [Concomitant]
     Dosage: 20 MG, UNK
  7. FLUOXETINE [Concomitant]
     Indication: PRODUCT USED FOR UNKNOWN INDICATION
     Dosage: UNK
  8. RITALIN SR [Concomitant]
     Indication: SOMNOLENCE
     Dosage: 20 MG, DAILY
     Route: 048
     Dates: start: 20060106
  9. OTHER ANALGESICS AND ANTIPYRETICS [Concomitant]
  10. ZANTAC [Concomitant]
     Indication: GASTROOESOPHAGEAL REFLUX DISEASE

REACTIONS (6)
  - Pain [Recovered/Resolved]
  - Drug effect decreased [Recovered/Resolved]
  - Scratch [Recovered/Resolved]
  - Pruritus [Recovered/Resolved]
  - Intentional drug misuse [Recovered/Resolved]
  - Urticaria [Recovered/Resolved]
